FAERS Safety Report 23564486 (Version 1)
Quarter: 2024Q1

REPORT INFORMATION
  Report Type: Spontaneous
  Country: US (occurrence: US)
  Receive Date: 20240226
  Receipt Date: 20240226
  Transmission Date: 20240410
  Serious: Yes (Death, Other)
  Sender: FDA-Public Use
  Company Number: US-SANDOZ-SDZ2023US008534

PATIENT

DRUGS (22)
  1. AZACITIDINE [Suspect]
     Active Substance: AZACITIDINE
     Indication: Product used for unknown indication
     Dosage: UNK
     Route: 065
  2. BLEOMYCIN [Suspect]
     Active Substance: BLEOMYCIN SULFATE
     Indication: Product used for unknown indication
     Dosage: 15 TO 300 MG
     Route: 065
  3. BLINATUMOMAB [Suspect]
     Active Substance: BLINATUMOMAB
     Indication: Product used for unknown indication
     Dosage: UNK
     Route: 065
  4. CYTARABINE [Suspect]
     Active Substance: CYTARABINE
     Indication: Product used for unknown indication
     Dosage: 1500 TO 4000 MG IN GROUP
     Route: 065
  5. CYTARABINE [Suspect]
     Active Substance: CYTARABINE
     Dosage: 840 TO 322,000 MG IN GROUP
     Route: 065
  6. DASATINIB [Suspect]
     Active Substance: DASATINIB
     Indication: Product used for unknown indication
     Dosage: UNK
     Route: 065
  7. DECITABINE [Suspect]
     Active Substance: DECITABINE
     Indication: Product used for unknown indication
     Dosage: UNK
     Route: 065
  8. DUVELISIB [Suspect]
     Active Substance: DUVELISIB
     Indication: Product used for unknown indication
     Dosage: UNK
     Route: 065
  9. GEMCITABINE [Suspect]
     Active Substance: GEMCITABINE
     Indication: Product used for unknown indication
     Dosage: UNK
     Route: 065
  10. GILTERITINIB [Suspect]
     Active Substance: GILTERITINIB
     Indication: Product used for unknown indication
     Dosage: UNK
     Route: 065
  11. IMATINIB [Suspect]
     Active Substance: IMATINIB
     Indication: Product used for unknown indication
     Dosage: UNK
     Route: 065
  12. IBRUTINIB [Suspect]
     Active Substance: IBRUTINIB
     Indication: Product used for unknown indication
     Dosage: UNK
     Route: 065
  13. ICLUSIG [Suspect]
     Active Substance: PONATINIB
     Indication: Product used for unknown indication
     Dosage: UNK
     Route: 065
  14. METHOTREXATE [Suspect]
     Active Substance: METHOTREXATE
     Dosage: 600 MG  IN GROUP 2
     Route: 065
  15. METHOTREXATE [Suspect]
     Active Substance: METHOTREXATE
     Indication: Product used for unknown indication
     Dosage: 600 MG IN GROUP 1
     Route: 065
  16. MELPHALAN [Suspect]
     Active Substance: MELPHALAN
     Indication: Product used for unknown indication
     Dosage: 1600 TO 4250 MG IN GROUP 2
     Route: 065
  17. NILOTINIB [Suspect]
     Active Substance: NILOTINIB
     Indication: Product used for unknown indication
     Dosage: UNK
     Route: 065
  18. NIVOLUMAB [Suspect]
     Active Substance: NIVOLUMAB
     Indication: Product used for unknown indication
     Dosage: 160 TO 6000 MG
     Route: 065
  19. RITUXIMAB [Suspect]
     Active Substance: RITUXIMAB
     Indication: Product used for unknown indication
     Dosage: 3600 TO 4200 MG IN GROUP 1
     Route: 065
  20. RITUXIMAB [Suspect]
     Active Substance: RITUXIMAB
     Dosage: 500 TO 128,000 MG IN GROUP 2
     Route: 065
  21. SIROLIMUS [Suspect]
     Active Substance: SIROLIMUS
     Indication: Product used for unknown indication
     Dosage: UNK
     Route: 065
  22. TACROLIMUS [Suspect]
     Active Substance: TACROLIMUS
     Indication: Product used for unknown indication
     Dosage: UNK
     Route: 065

REACTIONS (31)
  - Disease complication [Fatal]
  - Death [Fatal]
  - Pulmonary toxicity [Unknown]
  - Non-cardiogenic pulmonary oedema [Unknown]
  - Obliterative bronchiolitis [Unknown]
  - Interstitial lung disease [Unknown]
  - Pulmonary oedema [Unknown]
  - Pulmonary fibrosis [Unknown]
  - Radiation fibrosis - lung [Unknown]
  - Respiratory failure [Unknown]
  - Interstitial lung abnormality [Unknown]
  - Pulmonary hypertension [Unknown]
  - Autoimmune disorder [Unknown]
  - Pneumonia [Unknown]
  - Tumour cell mobilisation [Unknown]
  - Pulmonary vascular disorder [Unknown]
  - Pleural effusion [Unknown]
  - Body temperature increased [Unknown]
  - Lung infiltration [Unknown]
  - Bronchial wall thickening [Unknown]
  - White blood cell count abnormal [Unknown]
  - Eosinophil count abnormal [Unknown]
  - C-reactive protein abnormal [Unknown]
  - Blood creatinine abnormal [Unknown]
  - Atopy [Unknown]
  - Hypersensitivity [Unknown]
  - Chest discomfort [Unknown]
  - Chest pain [Unknown]
  - Imaging procedure abnormal [Unknown]
  - Dyspnoea [Unknown]
  - Cough [Unknown]
